FAERS Safety Report 4454732-X (Version None)
Quarter: 2004Q3

REPORT INFORMATION
  Report Type: 
  Country: None (occurrence: None)
  Receive Date: 20040920
  Receipt Date: 20040920
  Transmission Date: 20050211
  Serious: Yes (Hospitalization)
  Sender: FDA-Public Use
  Company Number: None

PATIENT
  Age: 26 Year
  Sex: Male

DRUGS (2)
  1. MIDAZOLAM HCL [Suspect]
     Indication: PREOPERATIVE CARE
     Dosage: 2 MG X1 DOSE INTRAVENOUS
     Route: 042
     Dates: start: 20040121, end: 20040121
  2. VANCOMYCIN [Suspect]
     Indication: PREOPERATIVE CARE
     Dosage: 1 GM X 1 DOSE INTRAVENOUS
     Route: 042
     Dates: start: 20040121, end: 20040121

REACTIONS (3)
  - CONVULSION [None]
  - EYE ROLLING [None]
  - LOSS OF CONSCIOUSNESS [None]
